FAERS Safety Report 10878866 (Version 1)
Quarter: 2015Q1

REPORT INFORMATION
  Report Type: Report from Study
  Country: GB (occurrence: GB)
  Receive Date: 20150302
  Receipt Date: 20150302
  Transmission Date: 20150721
  Serious: Yes (Hospitalization)
  Sender: FDA-Public Use
  Company Number: GB-CELGENE-167-21880-14010090

PATIENT
  Age: 77 Year
  Sex: Male

DRUGS (2)
  1. REVLIMID [Suspect]
     Active Substance: LENALIDOMIDE
     Indication: PLASMA CELL MYELOMA
     Route: 048
     Dates: start: 20120501, end: 20131223
  2. REVLIMID [Suspect]
     Active Substance: LENALIDOMIDE
     Route: 048
     Dates: start: 20131223, end: 20131224

REACTIONS (2)
  - Drug eruption [Recovered/Resolved]
  - Aortic stenosis [Recovered/Resolved]

NARRATIVE: CASE EVENT DATE: 201312
